FAERS Safety Report 5387046-4 (Version None)
Quarter: 2007Q3

REPORT INFORMATION
  Report Type: 
  Country: None (occurrence: None)
  Receive Date: 20070713
  Receipt Date: 20070704
  Transmission Date: 20080115
  Serious: Yes (Hospitalization)
  Sender: FDA-Public Use
  Company Number: JP-ABBOTT-07P-087-0373797-00

PATIENT
  Sex: Male

DRUGS (13)
  1. NORVIR [Suspect]
     Indication: HIV INFECTION
     Route: 048
     Dates: start: 20050315
  2. DIDANOSINE [Concomitant]
     Indication: HIV INFECTION
     Route: 048
     Dates: start: 20011023
  3. LAMIVUDINE [Concomitant]
     Indication: HIV INFECTION
     Route: 048
     Dates: start: 20011023
  4. ATAZANAVIR SULFATE [Concomitant]
     Indication: HIV INFECTION
     Route: 048
     Dates: start: 20041112, end: 20050314
  5. ATAZANAVIR SULFATE [Concomitant]
     Route: 048
     Dates: start: 20050315
  6. FAMOTIDINE [Concomitant]
     Indication: GASTRIC ULCER
     Route: 048
     Dates: start: 20050118
  7. TEPRENONE [Concomitant]
     Indication: GASTRIC ULCER
     Route: 048
     Dates: start: 20041119
  8. SPIRONOLACTONE [Concomitant]
     Indication: DIURETIC THERAPY
     Route: 048
     Dates: start: 20041109
  9. ZOPICLONE [Concomitant]
     Indication: INSOMNIA
     Route: 048
     Dates: start: 20050322
  10. ZOLPIDEM TARTRATE [Concomitant]
     Indication: INSOMNIA
     Route: 048
     Dates: start: 20060401
  11. FUROSEMIDE [Concomitant]
     Indication: PROPHYLAXIS AGAINST DEHYDRATION
     Route: 048
     Dates: start: 20060401
  12. LACTUROSE [Concomitant]
     Indication: BOWEL MOVEMENT IRREGULARITY
     Route: 048
     Dates: start: 20070115
  13. COAGULATION FACTOR VIII [Concomitant]
     Indication: HAEMOPHILIA
     Dosage: 1000-2000 U
     Route: 042
     Dates: start: 20000927

REACTIONS (2)
  - DEHYDRATION [None]
  - HYPERAMMONAEMIA [None]
